FAERS Safety Report 4887297-9 (Version None)
Quarter: 2005Q4

REPORT INFORMATION
  Report Type: 
  Country: None (occurrence: None)
  Receive Date: 20051221
  Receipt Date: 20051007
  Transmission Date: 20060501
  Serious: No
  Sender: FDA-Public Use
  Company Number: US-YAMANOUCHI-YPA20050527

PATIENT
  Sex: Female

DRUGS (1)
  1. VESICARE [Suspect]
     Dates: start: 20050101, end: 20051007

REACTIONS (4)
  - BUTTOCK PAIN [None]
  - CHEST PAIN [None]
  - MUSCULOSKELETAL CHEST PAIN [None]
  - PAIN IN EXTREMITY [None]
